FAERS Safety Report 8533673-2 (Version None)
Quarter: 2012Q3

REPORT INFORMATION
  Report Type: 
  Country: None (occurrence: None)
  Receive Date: 20120724
  Receipt Date: 20120717
  Transmission Date: 20120928
  Serious: No
  Sender: FDA-Public Use
  Company Number: US-PFIZER INC-2012138315

PATIENT
  Sex: Female

DRUGS (7)
  1. PREMARIN [Suspect]
     Indication: MENOPAUSE
     Dosage: UNK
  2. GABAPENTIN [Concomitant]
     Dosage: UNK
  3. SYNTHROID [Concomitant]
     Dosage: UNK
  4. LORAZEPAM [Concomitant]
     Dosage: UNK
  5. PREMARIN [Suspect]
     Indication: ATROPHIC VULVOVAGINITIS
     Dosage: 0.3 MG, 1X/DAY
  6. PROMETRIUM [Concomitant]
     Dosage: UNK
  7. DEPAKOTE [Concomitant]
     Dosage: UNK

REACTIONS (1)
  - TOOTH DISORDER [None]
